FAERS Safety Report 19297880 (Version 1)
Quarter: 2021Q2

REPORT INFORMATION
  Report Type: Spontaneous
  Country: UA (occurrence: UA)
  Receive Date: 20210525
  Receipt Date: 20210525
  Transmission Date: 20210717
  Serious: Yes (Death)
  Sender: FDA-Public Use
  Company Number: UA-ABBVIE-21K-269-3842211-00

PATIENT
  Age: 72 Year
  Sex: Male

DRUGS (2)
  1. VENCLYXTO [Suspect]
     Active Substance: VENETOCLAX
     Indication: CHRONIC LYMPHOCYTIC LEUKAEMIA
     Route: 048
     Dates: start: 202011, end: 202012
  2. MABTHERA [Concomitant]
     Active Substance: RITUXIMAB
     Indication: CHRONIC LYMPHOCYTIC LEUKAEMIA
     Dates: start: 202011

REACTIONS (3)
  - Neutropenia [Unknown]
  - Pneumonia [Fatal]
  - COVID-19 [Unknown]

NARRATIVE: CASE EVENT DATE: 202012
